FAERS Safety Report 17244346 (Version 4)
Quarter: 2023Q4

REPORT INFORMATION
  Report Type: Spontaneous
  Country: US (occurrence: US)
  Receive Date: 20200107
  Receipt Date: 20231112
  Transmission Date: 20240109
  Serious: Yes (Other)
  Sender: FDA-Public Use
  Company Number: US-GILEAD-2019-0444910

PATIENT
  Sex: Male

DRUGS (22)
  1. TRUVADA [Suspect]
     Active Substance: EMTRICITABINE\TENOFOVIR DISOPROXIL FUMARATE
     Indication: HIV infection
     Dosage: UNK
     Route: 048
     Dates: start: 200905, end: 201708
  2. TRUVADA [Suspect]
     Active Substance: EMTRICITABINE\TENOFOVIR DISOPROXIL FUMARATE
     Dosage: UNK
     Route: 048
     Dates: start: 2009, end: 2022
  3. BIKTARVY [Concomitant]
     Active Substance: BICTEGRAVIR SODIUM\EMTRICITABINE\TENOFOVIR ALAFENAMIDE FUMARATE
  4. DESCOVY [Concomitant]
     Active Substance: EMTRICITABINE\TENOFOVIR ALAFENAMIDE FUMARATE
  5. TIVICAY [Concomitant]
     Active Substance: DOLUTEGRAVIR SODIUM
  6. HYDROCHLOROTHIAZIDE [Concomitant]
     Active Substance: HYDROCHLOROTHIAZIDE
  7. AMLODIPINE BESYLATE [Concomitant]
     Active Substance: AMLODIPINE BESYLATE
  8. LOSARTAN POTASSIUM [Concomitant]
     Active Substance: LOSARTAN POTASSIUM
  9. ATORVASTATIN [Concomitant]
     Active Substance: ATORVASTATIN
  10. ALLOPURINOL [Concomitant]
     Active Substance: ALLOPURINOL
  11. ACNE [BENZOYL PEROXIDE] [Concomitant]
  12. TRIAMCINOLONE [Concomitant]
     Active Substance: TRIAMCINOLONE
  13. CLINDAMYCIN [Concomitant]
     Active Substance: CLINDAMYCIN
  14. CORDRAN [Concomitant]
     Active Substance: FLURANDRENOLIDE
  15. CLOTRIMAZOLE [Concomitant]
     Active Substance: CLOTRIMAZOLE
  16. HYDROCORTISONE [Concomitant]
     Active Substance: HYDROCORTISONE
  17. ASPIRIN [Concomitant]
     Active Substance: ASPIRIN
  18. CLONIDINE HYDROCHLORIDE [Concomitant]
     Active Substance: CLONIDINE HYDROCHLORIDE
  19. AMOXICILLIN\CLAVULANATE POTASSIUM [Concomitant]
     Active Substance: AMOXICILLIN\CLAVULANATE POTASSIUM
  20. ENALAPRIL [Concomitant]
     Active Substance: ENALAPRIL
  21. PANTOPRAZOLE [Concomitant]
     Active Substance: PANTOPRAZOLE
  22. SUCRALFATE [Concomitant]
     Active Substance: SUCRALFATE

REACTIONS (11)
  - Osteoporosis [Unknown]
  - Chronic kidney disease [Not Recovered/Not Resolved]
  - Renal impairment [Unknown]
  - Bone loss [Unknown]
  - Bone density decreased [Not Recovered/Not Resolved]
  - Pain [Unknown]
  - Emotional distress [Unknown]
  - Anxiety [Unknown]
  - Anhedonia [Unknown]
  - Osteopenia [Not Recovered/Not Resolved]
  - Vitamin D deficiency [Not Recovered/Not Resolved]

NARRATIVE: CASE EVENT DATE: 20100101
